FAERS Safety Report 5619742-5 (Version None)
Quarter: 2008Q1

REPORT INFORMATION
  Report Type: 
  Country: None (occurrence: None)
  Receive Date: 20080208
  Receipt Date: 20071130
  Transmission Date: 20080703
  Serious: Yes (Other)
  Sender: FDA-Public Use
  Company Number: A0696789A

PATIENT
  Age: 70 Year
  Sex: Female

DRUGS (2)
  1. ALTABAX [Suspect]
     Indication: CYST
     Dosage: 1APP THREE TIMES PER DAY
     Route: 061
     Dates: start: 20071101, end: 20071101
  2. NO CONCURRENT MEDICATION [Concomitant]

REACTIONS (4)
  - APPLICATION SITE ERYTHEMA [None]
  - APPLICATION SITE IRRITATION [None]
  - APPLICATION SITE PRURITUS [None]
  - APPLICATION SITE REACTION [None]
